FAERS Safety Report 10611414 (Version 3)
Quarter: 2014Q4

REPORT INFORMATION
  Report Type: Spontaneous
  Country: BR (occurrence: None)
  Receive Date: 20141124
  Receipt Date: 20141231
  Transmission Date: 20150529
  Serious: Yes (Death, Hospitalization)
  Sender: FDA-Public Use
  Company Number: 2014MPI01534

PATIENT
  Sex: Male

DRUGS (1)
  1. ADCETRIS [Suspect]
     Active Substance: BRENTUXIMAB VEDOTIN
     Indication: HODGKIN^S DISEASE

REACTIONS (5)
  - Condition aggravated [None]
  - Eosinophilic pneumonia [None]
  - Muscle spasms [None]
  - Pulmonary toxicity [None]
  - Dyspnoea [None]

NARRATIVE: CASE EVENT DATE: 20131014
